FAERS Safety Report 4519080-8 (Version None)
Quarter: 2004Q4

REPORT INFORMATION
  Report Type: 
  Country: None (occurrence: None)
  Receive Date: 20041201
  Receipt Date: 20041116
  Transmission Date: 20050328
  Serious: No
  Sender: FDA-Public Use
  Company Number: 2004AP05924

PATIENT
  Age: 70 Year
  Sex: Male

DRUGS (1)
  1. IRESSA [Suspect]
     Indication: LUNG NEOPLASM MALIGNANT
     Dosage: 250 MG DAILY PO
     Route: 048

REACTIONS (3)
  - CORNEAL INFILTRATES [None]
  - CORNEAL ULCER [None]
  - IRITIS [None]
